FAERS Safety Report 15731138 (Version 1)
Quarter: 2018Q4

REPORT INFORMATION
  Report Type: Spontaneous
  Country: US (occurrence: US)
  Receive Date: 20181217
  Receipt Date: 20181217
  Transmission Date: 20190205
  Serious: Yes (Other)
  Sender: FDA-Public Use
  Company Number: None

PATIENT
  Age: 73 Year
  Sex: Male

DRUGS (4)
  1. CLINDAMYCIN SOL 1% [Concomitant]
     Dates: start: 20181016
  2. ENBREL [Suspect]
     Active Substance: ETANERCEPT
     Indication: RHEUMATOID ARTHRITIS
     Dosage: ?          OTHER FREQUENCY:ONCE WEEKLY;?
     Route: 058
  3. AMOXICILLIN CAP 500MG [Concomitant]
     Dates: start: 20181204
  4. PROAIR HFA AER [Concomitant]
     Dates: start: 20181004

REACTIONS (1)
  - Visual impairment [None]

NARRATIVE: CASE EVENT DATE: 20181214
